FAERS Safety Report 25637301 (Version 2)
Quarter: 2025Q3

REPORT INFORMATION
  Report Type: Spontaneous
  Country: EU (occurrence: EU)
  Receive Date: 20250804
  Receipt Date: 20250826
  Transmission Date: 20251021
  Serious: Yes (Hospitalization)
  Sender: ORGANON
  Company Number: EU-ARISTO PHARMA-SIMVA202111211-L2A-2021-DE-1970893

PATIENT
  Age: 73 Year
  Sex: Female

DRUGS (54)
  1. SIMVASTATIN [Interacting]
     Active Substance: SIMVASTATIN
     Indication: Product used for unknown indication
     Dosage: 20 MILLIGRAM DAILY; 1 TABLET IN THE EVENING
     Route: 065
  2. SIMVASTATIN [Interacting]
     Active Substance: SIMVASTATIN
     Route: 065
  3. SIMVASTATIN [Interacting]
     Active Substance: SIMVASTATIN
     Route: 065
  4. SIMVASTATIN [Interacting]
     Active Substance: SIMVASTATIN
     Dosage: UNK, QD, 1 DAY(S)
     Route: 065
  5. TORSEMIDE [Interacting]
     Active Substance: TORSEMIDE
     Indication: Hypertension
     Dosage: 5 MILLIGRAM DAILY; 1 TABLET IN THE MORNING
     Route: 065
  6. TORSEMIDE [Interacting]
     Active Substance: TORSEMIDE
     Route: 065
  7. TORSEMIDE [Interacting]
     Active Substance: TORSEMIDE
     Dosage: UNK, QD, 1 DAY(S)
     Route: 065
  8. TORSEMIDE [Interacting]
     Active Substance: TORSEMIDE
     Route: 065
  9. TORSEMIDE [Interacting]
     Active Substance: TORSEMIDE
     Route: 065
  10. LISINOPRIL [Interacting]
     Active Substance: LISINOPRIL
     Indication: Hypertension
     Dosage: 40 MILLIGRAM DAILY; 2 TABLETS IN THE MORNING AND 2 TABLETS IN THE EVENING
     Route: 065
  11. LISINOPRIL [Interacting]
     Active Substance: LISINOPRIL
     Route: 065
  12. LISINOPRIL [Interacting]
     Active Substance: LISINOPRIL
     Dosage: UNK, QD
     Route: 065
  13. LISINOPRIL [Interacting]
     Active Substance: LISINOPRIL
     Dosage: 30 MILLIGRAM DAILY; 1 TABLETS IN THE MORNING AND 2 TABLETS IN THE EVENING
     Route: 065
  14. LISINOPRIL [Interacting]
     Active Substance: LISINOPRIL
     Dosage: UNK, QD, 1 DAY(S)
     Route: 065
  15. LISINOPRIL [Interacting]
     Active Substance: LISINOPRIL
     Route: 065
  16. LISINOPRIL [Interacting]
     Active Substance: LISINOPRIL
     Route: 065
  17. LISINOPRIL [Interacting]
     Active Substance: LISINOPRIL
     Route: 065
  18. ASPIRIN [Interacting]
     Active Substance: ASPIRIN
     Indication: Product used for unknown indication
     Dosage: 100 MILLIGRAM DAILY; 1 TABLET IN THE MORNING
     Route: 065
  19. ASPIRIN [Interacting]
     Active Substance: ASPIRIN
     Route: 065
  20. ASPIRIN [Interacting]
     Active Substance: ASPIRIN
     Route: 065
  21. ASPIRIN [Interacting]
     Active Substance: ASPIRIN
     Dosage: UNK, QD
     Route: 065
  22. PANTOPRAZOLE SODIUM [Interacting]
     Active Substance: PANTOPRAZOLE SODIUM
     Indication: Gastrooesophageal reflux disease
     Dosage: AS REQUIRED
     Route: 065
  23. PANTOPRAZOLE SODIUM [Interacting]
     Active Substance: PANTOPRAZOLE SODIUM
     Dosage: AS NECESSARY
     Route: 065
  24. PANTOPRAZOLE SODIUM [Interacting]
     Active Substance: PANTOPRAZOLE SODIUM
     Route: 065
  25. PANTOPRAZOLE SODIUM [Interacting]
     Active Substance: PANTOPRAZOLE SODIUM
     Route: 065
  26. PANTOPRAZOLE SODIUM [Interacting]
     Active Substance: PANTOPRAZOLE SODIUM
     Route: 065
  27. NEBIVOLOL [Interacting]
     Active Substance: NEBIVOLOL
     Indication: Palpitations
     Dosage: 2.5 MILLIGRAM DAILY; HALF TABLET IN THE EVENING
     Route: 065
  28. NEBIVOLOL [Interacting]
     Active Substance: NEBIVOLOL
     Route: 065
  29. NEBIVOLOL [Interacting]
     Active Substance: NEBIVOLOL
     Dosage: 5 MILLIGRAM DAILY; DISCONTINED DUE TO
     Route: 065
  30. NEBIVOLOL [Interacting]
     Active Substance: NEBIVOLOL
     Route: 065
  31. NEBIVOLOL [Interacting]
     Active Substance: NEBIVOLOL
     Route: 065
  32. NEBIVOLOL [Interacting]
     Active Substance: NEBIVOLOL
     Route: 065
  33. NEBIVOLOL [Interacting]
     Active Substance: NEBIVOLOL
     Dosage: UNK, QD, 1 DAY(S)
     Route: 065
  34. NITROGLYCERIN [Interacting]
     Active Substance: NITROGLYCERIN
     Indication: Product used for unknown indication
     Dosage: AS REQUIRED
     Route: 065
  35. NITROGLYCERIN [Interacting]
     Active Substance: NITROGLYCERIN
     Dosage: AS NECESSARY
     Route: 065
  36. NITROGLYCERIN [Interacting]
     Active Substance: NITROGLYCERIN
     Route: 065
  37. NITROGLYCERIN [Interacting]
     Active Substance: NITROGLYCERIN
     Route: 065
  38. NITROGLYCERIN [Interacting]
     Active Substance: NITROGLYCERIN
     Route: 065
  39. POTASSIUM IODIDE [Interacting]
     Active Substance: POTASSIUM IODIDE
     Indication: Product used for unknown indication
     Dosage: 200 MILLIGRAM DAILY; 1 TABLET IN THE MORNING
     Route: 065
  40. POTASSIUM IODIDE [Interacting]
     Active Substance: POTASSIUM IODIDE
     Route: 065
  41. POTASSIUM IODIDE [Interacting]
     Active Substance: POTASSIUM IODIDE
     Route: 065
  42. POTASSIUM IODIDE [Interacting]
     Active Substance: POTASSIUM IODIDE
     Route: 065
  43. POTASSIUM IODIDE [Interacting]
     Active Substance: POTASSIUM IODIDE
     Route: 065
  44. LERCANIDIPINE [Interacting]
     Active Substance: LERCANIDIPINE
     Indication: Product used for unknown indication
     Dosage: 1 DOSAGE FORMS DAILY; 1 DOSAGE FORM WAS 1 TABLET
     Route: 065
  45. LERCANIDIPINE [Interacting]
     Active Substance: LERCANIDIPINE
     Dosage: 5 DOSAGE FORMS DAILY; 1 DOSAGE FORM WAS 1 TABLET
     Route: 065
  46. LERCANIDIPINE [Interacting]
     Active Substance: LERCANIDIPINE
     Route: 065
  47. LERCANIDIPINE [Interacting]
     Active Substance: LERCANIDIPINE
     Route: 065
  48. LERCANIDIPINE [Interacting]
     Active Substance: LERCANIDIPINE
     Route: 065
  49. LERCANIDIPINE [Interacting]
     Active Substance: LERCANIDIPINE
     Route: 065
  50. LERCANIDIPINE HYDROCHLORIDE [Concomitant]
     Active Substance: LERCANIDIPINE HYDROCHLORIDE
     Indication: Product used for unknown indication
     Dosage: 1 DOSAGE FORMS DAILY; 1 DOSAGE FORM WAS ONE TABLET
     Route: 065
  51. LERCANIDIPINE HYDROCHLORIDE [Concomitant]
     Active Substance: LERCANIDIPINE HYDROCHLORIDE
     Route: 065
  52. LERCANIDIPINE HYDROCHLORIDE [Concomitant]
     Active Substance: LERCANIDIPINE HYDROCHLORIDE
     Route: 065
  53. LERCANIDIPINE HYDROCHLORIDE [Concomitant]
     Active Substance: LERCANIDIPINE HYDROCHLORIDE
     Route: 065
  54. LERCANIDIPINE HYDROCHLORIDE [Concomitant]
     Active Substance: LERCANIDIPINE HYDROCHLORIDE
     Route: 065

REACTIONS (12)
  - Drug ineffective [Unknown]
  - Blood pressure fluctuation [Unknown]
  - Feeling cold [Unknown]
  - Middle insomnia [Unknown]
  - Fear [Unknown]
  - Micturition urgency [Recovered/Resolved]
  - Dyspnoea [Not Recovered/Not Resolved]
  - Quality of life decreased [Recovered/Resolved]
  - Insomnia [Unknown]
  - Fatigue [Unknown]
  - Nausea [Recovered/Resolved]
  - Drug interaction [Unknown]
